FAERS Safety Report 6178762-5 (Version None)
Quarter: 2009Q2

REPORT INFORMATION
  Report Type: 
  Country: None (occurrence: None)
  Receive Date: 20090504
  Receipt Date: 20081124
  Transmission Date: 20091009
  Serious: No
  Sender: FDA-Public Use
  Company Number: US-ALEXION-A200800372

PATIENT

DRUGS (2)
  1. SOLIRIS [Suspect]
     Dosage: UNK, UNK
     Dates: end: 20081106
  2. IRON [Concomitant]

REACTIONS (3)
  - BLOOD PRESSURE INCREASED [None]
  - HEART RATE INCREASED [None]
  - PYREXIA [None]
